FAERS Safety Report 24971908 (Version 2)
Quarter: 2025Q3

REPORT INFORMATION
  Report Type: Report from Study
  Country: US (occurrence: None)
  Receive Date: 20250214
  Receipt Date: 20250810
  Transmission Date: 20251020
  Serious: Yes (Other)
  Sender: ALEXION PHARMACEUTICALS
  Company Number: US-AstraZeneca-2013SE58165

PATIENT
  Age: 86 Year
  Sex: Female
  Weight: 81.647 kg

DRUGS (6)
  1. NEXIUM [Suspect]
     Active Substance: ESOMEPRAZOLE MAGNESIUM
     Indication: Hiatus hernia
     Dosage: 40 MILLIGRAM, QD
     Dates: start: 2003
  2. CELEBREX [Concomitant]
     Active Substance: CELECOXIB
     Indication: Arthritis
     Dosage: 200 MILLIGRAM, QD
     Dates: start: 2010
  3. SYNTHROID [Concomitant]
     Active Substance: LEVOTHYROXINE SODIUM
     Indication: Hypothyroidism
     Dosage: .15 MILLIGRAM, QD
     Dates: start: 2003
  4. VITAMIN D [Concomitant]
     Active Substance: VITAMIN D NOS
  5. PRAVASTATIN [Concomitant]
     Active Substance: PRAVASTATIN
     Indication: Blood cholesterol abnormal
     Dosage: 40 MILLIGRAM, QD
     Dates: start: 2010
  6. COUMADIN [Concomitant]
     Active Substance: WARFARIN SODIUM
     Indication: Thrombosis
     Dates: start: 201001, end: 2012

REACTIONS (7)
  - Pulmonary thrombosis [Unknown]
  - Spinal fracture [Unknown]
  - Fall [Unknown]
  - Lower limb fracture [Unknown]
  - Intervertebral disc disorder [Unknown]
  - Auditory disorder [Unknown]
  - Spinal disorder [Unknown]

NARRATIVE: CASE EVENT DATE: 20090101
